FAERS Safety Report 6110380-7 (Version None)
Quarter: 2009Q1

REPORT INFORMATION
  Report Type: 
  Country: None (occurrence: None)
  Receive Date: 20090309
  Receipt Date: 20090309
  Transmission Date: 20090719
  Serious: No
  Sender: FDA-Public Use
  Company Number: None

PATIENT
  Age: 59 Year
  Sex: Female
  Weight: 70.3075 kg

DRUGS (1)
  1. TERBINAFINE HCL [Suspect]
     Indication: ONYCHOMYCOSIS
     Dosage: 1 TABLET DAILY PO
     Route: 048
     Dates: start: 20090205, end: 20090220

REACTIONS (2)
  - AGEUSIA [None]
  - NO THERAPEUTIC RESPONSE [None]
